FAERS Safety Report 11228777 (Version 1)
Quarter: 2015Q2

REPORT INFORMATION
  Report Type: Spontaneous
  Country: US (occurrence: None)
  Receive Date: 20150629
  Receipt Date: 20150629
  Transmission Date: 20150821
  Serious: No
  Sender: FDA-Public Use
  Company Number: None

PATIENT
  Age: 49 Year
  Sex: Male
  Weight: 92.53 kg

DRUGS (2)
  1. INFED [Suspect]
     Active Substance: IRON DEXTRAN
     Indication: IRON DEFICIENCY
     Dosage: 1000 MG QWEEK INTRAVENOUS?DURATION: ONCE
     Route: 042
  2. INFED [Suspect]
     Active Substance: IRON DEXTRAN
     Indication: ANAEMIA
     Dosage: 1000 MG QWEEK INTRAVENOUS?DURATION: ONCE
     Route: 042

REACTIONS (5)
  - Infusion related reaction [None]
  - Throat irritation [None]
  - Nasal congestion [None]
  - Pruritus [None]
  - Lacrimation increased [None]

NARRATIVE: CASE EVENT DATE: 20150514
